FAERS Safety Report 4681605-X (Version None)
Quarter: 2005Q2

REPORT INFORMATION
  Report Type: 
  Country: None (occurrence: None)
  Receive Date: 20050602
  Receipt Date: 20050523
  Transmission Date: 20051028
  Serious: Yes (Hospitalization, Other)
  Sender: FDA-Public Use
  Company Number: 2005026237

PATIENT
  Age: 80 Year
  Sex: Female
  Weight: 58.0604 kg

DRUGS (5)
  1. CELEBREX [Suspect]
     Indication: ARTHRALGIA
     Dosage: 200 MG (20 MG, 1 IN 1 D), ORAL
     Route: 048
     Dates: start: 20031001
  2. ECOTRIN (ACETYLSALICYLIC ACID0 [Concomitant]
  3. LANOXIN [Concomitant]
  4. CARDIAC THERAPY [Concomitant]
  5. ALL OTHER THERAPEUTIC PRODUCTS (ALL OTHER THERAPEUTIC PRODUCTS0 [Concomitant]

REACTIONS (7)
  - ARTHRALGIA [None]
  - NECK PAIN [None]
  - OPTIC ISCHAEMIC NEUROPATHY [None]
  - PAIN IN EXTREMITY [None]
  - SHOULDER PAIN [None]
  - STOMACH DISCOMFORT [None]
  - SWELLING [None]
